FAERS Safety Report 19878139 (Version 2)
Quarter: 2021Q4

REPORT INFORMATION
  Report Type: Spontaneous
  Country: US (occurrence: US)
  Receive Date: 20210923
  Receipt Date: 20211004
  Transmission Date: 20220303
  Serious: Yes (Hospitalization)
  Sender: FDA-Public Use
  Company Number: US-TEVA-2021-US-1955500

PATIENT
  Age: 70 Year
  Sex: Male

DRUGS (2)
  1. METHOTREXATE [Interacting]
     Active Substance: METHOTREXATE
     Indication: Rheumatoid arthritis
     Route: 058
  2. SULFAMETHOXAZOLE\TRIMETHOPRIM [Interacting]
     Active Substance: SULFAMETHOXAZOLE\TRIMETHOPRIM
     Indication: Cellulitis
     Route: 065

REACTIONS (7)
  - Myelosuppression [Recovered/Resolved]
  - Stomatitis [Unknown]
  - Gastrointestinal toxicity [Unknown]
  - Skin erosion [Unknown]
  - Toxicity to various agents [Unknown]
  - Febrile neutropenia [Recovered/Resolved]
  - Drug interaction [Unknown]
